FAERS Safety Report 7422757-8 (Version None)
Quarter: 2011Q2

REPORT INFORMATION
  Report Type: 
  Country: None (occurrence: None)
  Receive Date: 20110419
  Receipt Date: 20110406
  Transmission Date: 20111010
  Serious: Yes (Death, Hospitalization)
  Sender: FDA-Public Use
  Company Number: IT-SANOFI-AVENTIS-2011SA015222

PATIENT
  Age: 81 Year
  Sex: Female

DRUGS (5)
  1. FUROSEMIDE [Concomitant]
     Route: 065
  2. LEVOTHYROXINE SODIUM [Concomitant]
     Indication: PRIMARY HYPOTHYROIDISM
     Route: 065
  3. MULTAQ [Suspect]
     Route: 048
     Dates: start: 20101029, end: 20110303
  4. NITROGLICERINA [Concomitant]
     Route: 065
  5. MESALAZINE [Concomitant]
     Route: 065

REACTIONS (7)
  - OEDEMA PERIPHERAL [None]
  - LIVER DISORDER [None]
  - HEPATIC FAILURE [None]
  - COAGULATION FACTOR DEFICIENCY [None]
  - JAUNDICE [None]
  - ASTHENIA [None]
  - SOPOR [None]
